FAERS Safety Report 7601785-3 (Version None)
Quarter: 2011Q2

REPORT INFORMATION
  Report Type: 
  Country: None (occurrence: None)
  Receive Date: 20110630
  Receipt Date: 20101216
  Transmission Date: 20111010
  Serious: Yes (Death)
  Sender: FDA-Public Use
  Company Number: 10-ADE-SU-0065-ACT

PATIENT
  Sex: Male
  Weight: 11.3 kg

DRUGS (3)
  1. CORTICOSTEROIDS [Concomitant]
  2. RITUXAN [Concomitant]
  3. H P ACTHAR [Suspect]
     Indication: OPSOCLONUS MYOCLONUS
     Dosage: 34 IU IM BID TO QOD
     Dates: start: 20081225, end: 20091118

REACTIONS (7)
  - DRUG INEFFECTIVE [None]
  - BONE MARROW FAILURE [None]
  - SEPSIS [None]
  - HAEMORRHAGE INTRACRANIAL [None]
  - PANCYTOPENIA [None]
  - HYPOTENSION [None]
  - CARDIAC OUTPUT DECREASED [None]
